FAERS Safety Report 17112436 (Version 3)
Quarter: 2020Q1

REPORT INFORMATION
  Report Type: Spontaneous
  Country: US (occurrence: US)
  Receive Date: 20191204
  Receipt Date: 20200318
  Transmission Date: 20200409
  Serious: No
  Sender: FDA-Public Use
  Company Number: US-PFIZER INC-2019520522

PATIENT
  Age: 55 Year
  Sex: Male
  Weight: 91 kg

DRUGS (3)
  1. CELEBREX [Suspect]
     Active Substance: CELECOXIB
     Dosage: 40 MG, 2X/DAY
  2. CELEBREX [Suspect]
     Active Substance: CELECOXIB
     Indication: ABDOMINAL PAIN
     Dosage: 100 MG, 2X/DAY
     Route: 048
  3. DIAZEPAM. [Concomitant]
     Active Substance: DIAZEPAM
     Indication: HYPERTENSION
     Dosage: UNK

REACTIONS (13)
  - Depressed mood [Unknown]
  - Muscle atrophy [Unknown]
  - Musculoskeletal pain [Not Recovered/Not Resolved]
  - Myalgia [Unknown]
  - Feeling abnormal [Unknown]
  - Laboratory test abnormal [Unknown]
  - Drug ineffective [Unknown]
  - Bone pain [Unknown]
  - Pain of skin [Not Recovered/Not Resolved]
  - Skin disorder [Unknown]
  - Weight decreased [Unknown]
  - Skin burning sensation [Unknown]
  - Bone density abnormal [Unknown]

NARRATIVE: CASE EVENT DATE: 2019
